FAERS Safety Report 19329907 (Version 3)
Quarter: 2021Q4

REPORT INFORMATION
  Report Type: Spontaneous
  Country: JP (occurrence: JP)
  Receive Date: 20210528
  Receipt Date: 20211025
  Transmission Date: 20220303
  Serious: Yes (Life-Threatening, Hospitalization)
  Sender: FDA-Public Use
  Company Number: JP-MYLANLABS-2021M1031225

PATIENT
  Age: 72 Year
  Sex: Female

DRUGS (2)
  1. CARBOPLATIN [Suspect]
     Active Substance: CARBOPLATIN
     Indication: Endometrial cancer stage III
     Dosage: AT A DOSE CORRESPONDING TO AN AREA UNDER THE CURVE (AUC) OF 5 MG/ML/MIN
     Route: 065
  2. PACLITAXEL [Suspect]
     Active Substance: PACLITAXEL
     Indication: Endometrial cancer stage III
     Dosage: 175 MILLIGRAM/SQ. METER, 3-HOUR INFUSION
     Route: 065

REACTIONS (5)
  - Neutropenic colitis [Recovered/Resolved]
  - Septic shock [Recovered/Resolved]
  - Disseminated intravascular coagulation [Recovered/Resolved]
  - Systemic inflammatory response syndrome [Recovered/Resolved]
  - Febrile neutropenia [Recovered/Resolved]
